FAERS Safety Report 9417761 (Version 9)
Quarter: 2015Q4

REPORT INFORMATION
  Report Type: Spontaneous
  Country: US (occurrence: US)
  Receive Date: 20130724
  Receipt Date: 20151009
  Transmission Date: 20160305
  Serious: Yes (Hospitalization, Other)
  Sender: FDA-Public Use
  Company Number: US-GLAXOSMITHKLINE-A1034235A

PATIENT
  Age: 44 Year
  Sex: Male

DRUGS (9)
  1. FLOLAN [Suspect]
     Active Substance: EPOPROSTENOL SODIUM
     Dosage: DOSE: 10 NG/KG/MINCONCENTRATION: 15,000 NG/MLVIAL STRENGTH: 1.5 MGPUMP RATE: 81 ML/DAY
  2. REVATIO [Concomitant]
     Active Substance: SILDENAFIL CITRATE
  3. FLOLAN [Suspect]
     Active Substance: EPOPROSTENOL SODIUM
     Indication: PRODUCT USED FOR UNKNOWN INDICATION
     Dosage: DOSE: 10 NG/KG/MINCONCENTRATION: 15,000 NG/MLVIAL STRENGTH: 1.5 MGPUMP RATE: 81 ML/DAY
     Route: 042
     Dates: start: 20121029
  4. FLOLAN [Suspect]
     Active Substance: EPOPROSTENOL SODIUM
     Dosage: DOSE: 10 NG/KG/MINCONCENTRATION: 15,000 NG/MLVIAL STRENGTH: 1.5 MGPUMP RATE: 81 ML/DAY
     Dates: start: 20121015, end: 20150701
  5. FLOLAN [Suspect]
     Active Substance: EPOPROSTENOL SODIUM
     Dosage: UNK
     Dates: start: 20121029
  6. FLOLAN [Suspect]
     Active Substance: EPOPROSTENOL SODIUM
     Dosage: UNK
     Dates: start: 20121029
  7. FLOLAN [Suspect]
     Active Substance: EPOPROSTENOL SODIUM
     Dosage: UNK
  8. LETAIRIS [Concomitant]
     Active Substance: AMBRISENTAN
  9. WARFARIN [Concomitant]
     Active Substance: WARFARIN

REACTIONS (7)
  - Device alarm issue [Recovered/Resolved]
  - Upper respiratory tract infection [Unknown]
  - Anaemia [Recovered/Resolved]
  - Fatigue [Recovered/Resolved]
  - Hospitalisation [Not Recovered/Not Resolved]
  - Medical device complication [Recovered/Resolved]
  - Thrombosis in device [Recovered/Resolved]

NARRATIVE: CASE EVENT DATE: 20130710
